FAERS Safety Report 6329866-5 (Version None)
Quarter: 2009Q3

REPORT INFORMATION
  Report Type: 
  Country: None (occurrence: None)
  Receive Date: 20090826
  Receipt Date: 20090819
  Transmission Date: 20100115
  Serious: Yes (Hospitalization, Disabling, Other)
  Sender: FDA-Public Use
  Company Number: US-BAXTER-2009BH013016

PATIENT
  Age: 69 Year
  Sex: Male
  Weight: 85 kg

DRUGS (15)
  1. FENTANYL CITRATE [Suspect]
     Indication: ANAESTHESIA
     Route: 040
     Dates: start: 20090731, end: 20090731
  2. FENTANYL CITRATE [Suspect]
     Route: 040
     Dates: start: 20090731, end: 20090731
  3. FENTANYL CITRATE [Suspect]
     Route: 040
     Dates: start: 20090731, end: 20090731
  4. MIDAZOLAM HYDROCHLORIDE [Suspect]
     Indication: ANAESTHESIA
     Route: 040
     Dates: start: 20090731, end: 20090731
  5. MIDAZOLAM HYDROCHLORIDE [Suspect]
     Route: 040
     Dates: start: 20090731, end: 20090731
  6. HYDROMORPHONE HCL [Suspect]
     Indication: ANALGESIA
     Route: 040
     Dates: start: 20090801, end: 20090801
  7. PHENYLEPHRINE HYDROCHLORIDE [Suspect]
     Indication: HYPOTENSION
     Route: 042
     Dates: start: 20090731, end: 20090731
  8. EPINEPHRINE [Suspect]
     Indication: HYPOTENSION
     Route: 042
     Dates: start: 20090731, end: 20090802
  9. CARDENE [Suspect]
     Indication: HYPERTENSION
     Route: 042
     Dates: start: 20090731, end: 20090731
  10. CARDENE [Suspect]
     Route: 042
     Dates: start: 20090731, end: 20090731
  11. CLEVIPREX [Suspect]
     Indication: DRUG USE FOR UNKNOWN INDICATION
     Route: 040
     Dates: start: 20090731, end: 20090731
  12. CLEVIPREX [Suspect]
     Route: 040
     Dates: start: 20090731, end: 20090731
  13. INSULIN [Concomitant]
     Indication: DRUG USE FOR UNKNOWN INDICATION
     Route: 065
     Dates: start: 20090731, end: 20090801
  14. CALCIUM CHLORIDE [Concomitant]
     Indication: DRUG USE FOR UNKNOWN INDICATION
     Route: 065
     Dates: start: 20090731, end: 20090731
  15. SODIUM BICARBONATE IN PLASTIC CONTAINER [Concomitant]
     Indication: DRUG USE FOR UNKNOWN INDICATION
     Route: 065
     Dates: start: 20090731, end: 20090731

REACTIONS (6)
  - APHASIA [None]
  - DELIRIUM [None]
  - ENCEPHALOPATHY [None]
  - HYPOTENSION [None]
  - MENTAL STATUS CHANGES [None]
  - UNRESPONSIVE TO STIMULI [None]
